FAERS Safety Report 9555214 (Version 1)
Quarter: 2013Q3

REPORT INFORMATION
  Report Type: Spontaneous
  Country: US (occurrence: None)
  Receive Date: 20130917
  Receipt Date: 20130917
  Transmission Date: 20140515
  Serious: Yes (Other)
  Sender: FDA-Public Use
  Company Number: 095967

PATIENT
  Sex: Female

DRUGS (6)
  1. ROTIGOTINE [Suspect]
     Indication: RESTLESS LEGS SYNDROME
     Route: 062
     Dates: start: 20130814, end: 201308
  2. VITAMINS NOS [Concomitant]
  3. IRON [Concomitant]
  4. PRILOSEC [Concomitant]
  5. CLONIDINE [Concomitant]
  6. GABAPENTIN [Concomitant]

REACTIONS (3)
  - Heart rate increased [None]
  - Psychomotor hyperactivity [None]
  - Blood pressure diastolic decreased [None]
